FAERS Safety Report 8154638-9 (Version None)
Quarter: 2012Q1

REPORT INFORMATION
  Report Type: 
  Country: None (occurrence: None)
  Receive Date: 20120221
  Receipt Date: 20120220
  Transmission Date: 20120608
  Serious: Yes (Other)
  Sender: FDA-Public Use
  Company Number: US-PFIZER INC-2012044722

PATIENT
  Sex: Male
  Weight: 134 kg

DRUGS (5)
  1. PLAVIX [Concomitant]
     Indication: ANTICOAGULANT THERAPY
     Dosage: DAILY
     Route: 048
  2. METOPROLOL [Concomitant]
     Dosage: 2X/DAY
  3. LIPITOR [Suspect]
     Indication: BLOOD CHOLESTEROL ABNORMAL
     Dosage: 40 MG, DAILY AT NIGHT
     Route: 048
  4. LIPITOR [Suspect]
     Dosage: 80 MG, DAILY AT NIGHT
  5. DIOVAN [Concomitant]
     Indication: BLOOD PRESSURE ABNORMAL
     Dosage: DAILY
     Route: 048

REACTIONS (2)
  - MYOCARDIAL INFARCTION [None]
  - CORONARY ARTERIAL STENT INSERTION [None]
